FAERS Safety Report 17454736 (Version 1)
Quarter: 2020Q1

REPORT INFORMATION
  Report Type: Spontaneous
  Country: AS (occurrence: AS)
  Receive Date: 20200211
  Receipt Date: 20200211
  Transmission Date: 20200409
  Serious: Yes (Hospitalization)
  Sender: FDA-Public Use
  Company Number: None

PATIENT
  Age: 56 Year
  Sex: Female

DRUGS (1)
  1. HUMIRA [Suspect]
     Active Substance: ADALIMUMAB
     Indication: PSORIATIC ARTHROPATHY
     Dosage: ?          OTHER DOSE:1 PEN;?
     Route: 058
     Dates: start: 20190717

REACTIONS (4)
  - Condition aggravated [None]
  - Knee operation [None]
  - Pain [None]
  - Therapy cessation [None]

NARRATIVE: CASE EVENT DATE: 20200204
